FAERS Safety Report 9458769 (Version 1)
Quarter: 2013Q3

REPORT INFORMATION
  Report Type: Report from Study
  Country: US (occurrence: US)
  Receive Date: 20130814
  Receipt Date: 20130814
  Transmission Date: 20140515
  Serious: Yes (Other)
  Sender: FDA-Public Use
  Company Number: US-ABBOTT-13P-163-1130291-00

PATIENT
  Age: 63 Year
  Sex: Female

DRUGS (14)
  1. HUMIRA [Suspect]
     Indication: CROHN^S DISEASE
  2. IMURAN [Concomitant]
     Indication: CROHN^S DISEASE
     Dosage: 3 1/2 TABLETS A DAY
  3. IMODIUM [Concomitant]
     Indication: DIARRHOEA
     Dosage: AS NEEDED UP TO 4 A DAY
  4. BUSPAR [Concomitant]
     Indication: ANXIETY
  5. WELLBUTRIN [Concomitant]
     Indication: DEPRESSION
  6. VICODIN [Concomitant]
     Indication: PAIN
  7. ESTRADIOL [Concomitant]
     Indication: SUPPLEMENTATION THERAPY
  8. ASPIRIN [Concomitant]
     Indication: CARDIAC DISORDER
  9. VITAMIN B 12 [Concomitant]
     Indication: PRODUCT USED FOR UNKNOWN INDICATION
  10. CALCIUM [Concomitant]
     Indication: PRODUCT USED FOR UNKNOWN INDICATION
  11. MULTIVITAMINS [Concomitant]
     Indication: PRODUCT USED FOR UNKNOWN INDICATION
  12. B-12 [Concomitant]
     Indication: PRODUCT USED FOR UNKNOWN INDICATION
  13. VITAMIN D [Concomitant]
     Indication: PRODUCT USED FOR UNKNOWN INDICATION
  14. FISH OIL [Concomitant]
     Indication: SUPPLEMENTATION THERAPY

REACTIONS (9)
  - Cholecystectomy [Unknown]
  - Thyroid disorder [Unknown]
  - Hyperhidrosis [Unknown]
  - Hot flush [Unknown]
  - Bunion [Unknown]
  - Ileectomy [Unknown]
  - Small intestinal obstruction [Unknown]
  - Memory impairment [Unknown]
  - Drug ineffective [Unknown]
